FAERS Safety Report 6870876-7 (Version None)
Quarter: 2010Q3

REPORT INFORMATION
  Report Type: 
  Country: None (occurrence: None)
  Receive Date: 20100723
  Receipt Date: 20100709
  Transmission Date: 20110219
  Serious: Yes (Other)
  Sender: FDA-Public Use
  Company Number: PHHY2010ZA45962

PATIENT
  Sex: Female

DRUGS (3)
  1. TAREG [Suspect]
     Dosage: UNK
  2. TAREG [Suspect]
     Dosage: UNK
     Dates: start: 20100611
  3. GLUCOPHAGE [Concomitant]

REACTIONS (1)
  - KNEE ARTHROPLASTY [None]
